FAERS Safety Report 25488473 (Version 1)
Quarter: 2025Q2

REPORT INFORMATION
  Report Type: Spontaneous
  Country: AU (occurrence: AU)
  Receive Date: 20250627
  Receipt Date: 20250627
  Transmission Date: 20250717
  Serious: Yes (Other)
  Sender: ORGANON
  Company Number: AU-SUN PHARMACEUTICAL INDUSTRIES LTD-2024R1-469523

PATIENT
  Age: 25 Year
  Sex: Male

DRUGS (4)
  1. BETAMETHASONE DIPROPIONATE [Suspect]
     Active Substance: BETAMETHASONE DIPROPIONATE
     Indication: Rash pruritic
  2. CLOTRIMAZOLE [Suspect]
     Active Substance: CLOTRIMAZOLE
     Indication: Rash pruritic
     Route: 061
  3. FLUCONAZOLE [Suspect]
     Active Substance: FLUCONAZOLE
     Indication: Rash pruritic
     Dosage: 150 MILLIGRAM, ONCE IN A WEEK (QW)
     Route: 048
  4. TERBINAFINE [Suspect]
     Active Substance: TERBINAFINE
     Indication: Rash pruritic

REACTIONS (2)
  - Drug resistance [Unknown]
  - Therapeutic response decreased [Unknown]
